FAERS Safety Report 4265894-1 (Version None)
Quarter: 2004Q1

REPORT INFORMATION
  Report Type: 
  Country: None (occurrence: None)
  Receive Date: 20040106
  Receipt Date: 20031224
  Transmission Date: 20041129
  Serious: Yes (Hospitalization)
  Sender: FDA-Public Use
  Company Number: US-JNJFOC-20031205289

PATIENT
  Age: 77 Year
  Sex: Female

DRUGS (11)
  1. INFLIXIMAB (INFLIXIMAB, RECOMBINANT) LYOPHILIZED POWDER [Suspect]
     Indication: RHEUMATOID ARTHRITIS
     Dosage: INTRAVENOUS
     Route: 042
     Dates: start: 20010212
  2. VIOXX [Concomitant]
  3. PRAVACHOL [Concomitant]
  4. PLAVIX [Concomitant]
  5. PREDNISONE [Concomitant]
  6. PLAQUENIL [Concomitant]
  7. PREMARIN [Concomitant]
  8. MIACALCIN [Concomitant]
  9. LOPID [Concomitant]
  10. LOTENSIN [Concomitant]
  11. DURAGESIC [Concomitant]

REACTIONS (3)
  - CAROTID ARTERY STENOSIS [None]
  - CONFUSIONAL STATE [None]
  - SYNCOPE [None]
